FAERS Safety Report 7154737-4 (Version None)
Quarter: 2010Q4

REPORT INFORMATION
  Report Type: 
  Country: None (occurrence: None)
  Receive Date: 20101214
  Receipt Date: 20091106
  Transmission Date: 20110411
  Serious: No
  Sender: FDA-Public Use
  Company Number: US-AMGEN-KDL373252

PATIENT

DRUGS (10)
  1. ENBREL [Suspect]
     Indication: PRODUCT USED FOR UNKNOWN INDICATION
     Dosage: 25 MG, 2 TIMES/WK
     Route: 058
  2. HYDROXYCHLOROQUINE SULFATE [Concomitant]
     Dosage: 200 MG, UNK
     Route: 048
  3. NABUMETONE [Concomitant]
     Dosage: 750 MG, UNK
     Route: 048
  4. TRAMADOL HYDROCHLORIDE [Concomitant]
     Dosage: 50 MG, UNK
     Route: 048
  5. METHOTREXATE [Concomitant]
     Dosage: 2.5 MG, UNK
  6. PREDNISONE [Concomitant]
     Dosage: 5 MG, UNK
     Route: 048
  7. FOLIC ACID [Concomitant]
     Dosage: 1 MG, UNK
     Route: 048
  8. UNSPECIFIED MEDICATION [Concomitant]
     Dosage: UNK UNK, UNK
     Route: 048
  9. MULTI-VITAMINS [Concomitant]
     Dosage: UNK UNK, UNK
     Route: 048
  10. FERROUS SULFATE [Concomitant]
     Dosage: UNK UNK, UNK
     Route: 048

REACTIONS (1)
  - SINUSITIS [None]
